FAERS Safety Report 9515025 (Version 1)
Quarter: 2013Q1

REPORT INFORMATION
  Report Type: Spontaneous
  Country: US (occurrence: None)
  Receive Date: 20130305
  Receipt Date: 20130305
  Transmission Date: 20140127
  Serious: Yes (Other)
  Sender: FDA-Public Use
  Company Number: 163-21880-12121043

PATIENT
  Age: 71 Year
  Sex: Male

DRUGS (9)
  1. REVLIMID [Suspect]
     Indication: PLASMA CELL MYELOMA
     Dosage: 10 MG, 21 IN 21 D, PO
     Route: 048
     Dates: start: 20120227
  2. ZOMETA (ZOLEDRONIC ACID) [Concomitant]
  3. SINGULAIR [Concomitant]
  4. PROBIOTIC (BIFIDOBACTERIUM LACTIS) [Concomitant]
  5. NASONEX (MOMETASONE FUROATE) [Concomitant]
  6. LEVAQUIN (LEVOFLOXACIN) [Concomitant]
  7. DEXAMETHASONE (DEXAMETHASONE) [Concomitant]
  8. COUMADIN (WARFARIN SODIUM) [Concomitant]
  9. CIPRO (CIPROFLOXACIN) [Concomitant]

REACTIONS (1)
  - Full blood count decreased [None]
